FAERS Safety Report 7746969-9 (Version None)
Quarter: 2011Q3

REPORT INFORMATION
  Report Type: 
  Country: None (occurrence: None)
  Receive Date: 20110913
  Receipt Date: 20110905
  Transmission Date: 20111222
  Serious: Yes (Death, Other)
  Sender: FDA-Public Use
  Company Number: PHHY2010JP20527

PATIENT
  Sex: Male
  Weight: 51 kg

DRUGS (10)
  1. ADALAT [Concomitant]
     Indication: HYPERTENSION
     Dosage: 20 MG, UNK
     Route: 048
     Dates: start: 20090202
  2. SELBEX [Concomitant]
     Dosage: 150 MG, UNK
     Route: 048
     Dates: start: 20070815
  3. VALSARTAN [Suspect]
     Indication: HYPERTENSION
     Dosage: 80 MG, QD
     Route: 048
     Dates: start: 20090218
  4. ADALAT [Concomitant]
     Dosage: 40 MG, UNK
     Route: 048
  5. DEPAS [Concomitant]
     Dosage: 0.5 MG, UNK
     Route: 048
     Dates: start: 20070815
  6. ALDOMET [Concomitant]
     Indication: HYPERTENSION
     Dosage: 375 MG, UNK
     Route: 048
     Dates: start: 20091127
  7. GLAKAY [Concomitant]
     Dosage: 30 MG, UNK
     Route: 048
     Dates: start: 20070815
  8. VITAMEDIN [Concomitant]
     Dosage: 75 MG, UNK
     Route: 048
     Dates: start: 20070815, end: 20091213
  9. CALCIUM CARBONATE [Concomitant]
     Dosage: 3600 MG, UNK
     Route: 048
     Dates: start: 20071112
  10. OMEPRAZOLE [Concomitant]
     Dosage: 30 MG, UNK
     Route: 048
     Dates: start: 20080304

REACTIONS (3)
  - BLOOD PRESSURE DIASTOLIC DECREASED [None]
  - MYELODYSPLASTIC SYNDROME [None]
  - BLOOD CREATININE INCREASED [None]
